FAERS Safety Report 13352247 (Version 1)
Quarter: 2017Q1

REPORT INFORMATION
  Report Type: Spontaneous
  Country: US (occurrence: US)
  Receive Date: 20170320
  Receipt Date: 20170320
  Transmission Date: 20170429
  Serious: No
  Sender: FDA-Public Use
  Company Number: US-SA-2016SA098611

PATIENT
  Age: 41 Year
  Sex: Male

DRUGS (1)
  1. NASACORT ALLERGY 24HR [Suspect]
     Active Substance: TRIAMCINOLONE ACETONIDE
     Indication: HYPERSENSITIVITY
     Dosage: DAILY DOSE: 1-2 SPRAY
     Route: 065

REACTIONS (4)
  - Pain [Unknown]
  - Nausea [Unknown]
  - Hyperhidrosis [Unknown]
  - Expired product administered [Unknown]
